FAERS Safety Report 6699362-4 (Version None)
Quarter: 2010Q2

REPORT INFORMATION
  Report Type: 
  Country: None (occurrence: None)
  Receive Date: 20100427
  Receipt Date: 20100416
  Transmission Date: 20101027
  Serious: Yes (Death, Hospitalization, Other)
  Sender: FDA-Public Use
  Company Number: US-BAXTER-2010BH006619

PATIENT
  Age: 39 Year
  Sex: Male

DRUGS (1)
  1. DIANEAL [Suspect]
     Indication: PERITONEAL DIALYSIS
     Route: 033
     Dates: start: 20091202, end: 20100415

REACTIONS (4)
  - CARDIAC DISORDER [None]
  - HEPATIC FAILURE [None]
  - LIVER DISORDER [None]
  - PERITONITIS [None]
